FAERS Safety Report 4896101-4 (Version None)
Quarter: 2005Q4

REPORT INFORMATION
  Report Type: 
  Country: None (occurrence: None)
  Receive Date: 20051220
  Receipt Date: 20050727
  Transmission Date: 20060501
  Serious: Yes (Life-Threatening, Hospitalization, Other)
  Sender: FDA-Public Use
  Company Number: US143724

PATIENT
  Age: 66 Year
  Sex: Female

DRUGS (5)
  1. ENBREL [Suspect]
     Indication: RHEUMATOID ARTHRITIS
     Dosage: 50 MG, 1 IN 1 WEEKS, SC
     Route: 058
     Dates: start: 20031230, end: 20050525
  2. PILOCARPINE [Concomitant]
  3. CELECOXIB [Concomitant]
  4. CALCIUM CARBONATE [Concomitant]
  5. SIMVASTATIN [Concomitant]

REACTIONS (2)
  - ENCEPHALITIS HERPES [None]
  - ESCHERICHIA SEPSIS [None]
